FAERS Safety Report 12854769 (Version 2)
Quarter: 2017Q1

REPORT INFORMATION
  Report Type: Other
  Country: IT (occurrence: IT)
  Receive Date: 20161017
  Receipt Date: 20170105
  Transmission Date: 20170428
  Serious: Yes (Hospitalization)
  Sender: FDA-Public Use
  Company Number: IT-VALIDUS PHARMACEUTICALS LLC-IT-2016VAL002829

PATIENT
  Age: 67 Year
  Sex: Male

DRUGS (3)
  1. CARDIOASPIRIN [Concomitant]
     Active Substance: ASPIRIN
     Indication: PRODUCT USED FOR UNKNOWN INDICATION
     Dosage: UNK
     Route: 065
  2. SOLU-MEDROL [Suspect]
     Active Substance: METHYLPREDNISOLONE SODIUM SUCCINATE
     Indication: ENCEPHALOPATHY
     Dosage: 250 MG, QD
     Route: 042
     Dates: start: 20160928, end: 20160930
  3. LASIX [Suspect]
     Active Substance: FUROSEMIDE
     Indication: ENCEPHALOPATHY
     Dosage: 1000 MG, QD
     Route: 042
     Dates: start: 20160928, end: 20160930

REACTIONS (1)
  - Cardiac disorder [Not Recovered/Not Resolved]

NARRATIVE: CASE EVENT DATE: 20160930
